FAERS Safety Report 5168918-2 (Version None)
Quarter: 2006Q4

REPORT INFORMATION
  Report Type: 
  Country: None (occurrence: None)
  Receive Date: 20061211
  Receipt Date: 20061127
  Transmission Date: 20070319
  Serious: Yes (Hospitalization)
  Sender: FDA-Public Use
  Company Number: PHRM2006FR03190

PATIENT
  Age: 90 Year
  Sex: Female

DRUGS (14)
  1. AREDIA [Suspect]
     Indication: OSTEOPOROSIS
     Route: 042
     Dates: start: 20060518, end: 20060519
  2. PLAVIX [Concomitant]
     Indication: ISCHAEMIC CARDIOMYOPATHY
     Dosage: 1 DF, QD
     Route: 048
  3. NITRODERM [Concomitant]
     Indication: ISCHAEMIC CARDIOMYOPATHY
     Dosage: 1 DF, QD
     Route: 062
  4. LEXOMIL [Concomitant]
     Indication: SLEEP DISORDER
     Dosage: 0.25 DF, QD
     Route: 048
  5. LASIX [Concomitant]
     Indication: ISCHAEMIC CARDIOMYOPATHY
     Dosage: 1 DF, QD
     Route: 048
  6. DILTIAZEM HYDROCHLORIDE [Concomitant]
     Indication: ISCHAEMIC CARDIOMYOPATHY
     Dosage: 1 DF, QD
     Route: 048
  7. CALCIUM [Concomitant]
     Dates: start: 20060516
  8. CACIT D3 [Concomitant]
     Dates: start: 20060516
  9. MYOLASTAN [Concomitant]
     Dates: start: 20060516
  10. FOSAMAX [Concomitant]
  11. DOLIPRANE [Concomitant]
  12. PRAXILENE [Concomitant]
     Dosage: 200 MG, BID
     Route: 048
  13. VASTAREL [Concomitant]
     Dosage: 2 DF DAILY
     Route: 048
  14. OMEPRAZOLE [Concomitant]
     Dosage: 20 MG, QD
     Route: 048

REACTIONS (4)
  - CEREBRAL ATROPHY [None]
  - CONFUSIONAL STATE [None]
  - ELECTROENCEPHALOGRAM ABNORMAL [None]
  - HALLUCINATION, VISUAL [None]
